FAERS Safety Report 11331402 (Version 5)
Quarter: 2016Q1

REPORT INFORMATION
  Report Type: Report from Study
  Country: FR (occurrence: FR)
  Receive Date: 20150803
  Receipt Date: 20160205
  Transmission Date: 20160525
  Serious: Yes (Hospitalization)
  Sender: FDA-Public Use
  Company Number: FR-INCYTE CORPORATION-2015IN003696

PATIENT
  Age: 74 Year
  Sex: Male

DRUGS (4)
  1. HYDREA [Suspect]
     Active Substance: HYDROXYUREA
     Indication: MYELOFIBROSIS
     Dosage: UNK
     Route: 065
     Dates: start: 20140904
  2. HYDREA [Suspect]
     Active Substance: HYDROXYUREA
     Dosage: 2 DF, BID (MORNING AND EVENING)
     Route: 065
     Dates: start: 20150729
  3. HYDREA [Suspect]
     Active Substance: HYDROXYUREA
     Indication: MYELOFIBROSIS
     Dosage: 6 DF, QD (IN MORNING AND EVENING)
     Dates: start: 20150713
  4. JAKAFI [Suspect]
     Active Substance: RUXOLITINIB
     Indication: MYELOFIBROSIS
     Dosage: UNK
     Route: 065
     Dates: start: 20131115, end: 20150710

REACTIONS (8)
  - Oedema peripheral [Recovering/Resolving]
  - Neutrophil count increased [Unknown]
  - Myelofibrosis [Recovering/Resolving]
  - Haemoglobin decreased [Unknown]
  - Acute myeloid leukaemia [Not Recovered/Not Resolved]
  - Pyrexia [Recovered/Resolved]
  - Brain natriuretic peptide increased [Unknown]
  - Platelet count decreased [Unknown]

NARRATIVE: CASE EVENT DATE: 20150710
